FAERS Safety Report 23947367 (Version 2)
Quarter: 2024Q3

REPORT INFORMATION
  Report Type: Spontaneous
  Country: US (occurrence: US)
  Receive Date: 20240606
  Receipt Date: 20240801
  Transmission Date: 20241017
  Serious: No
  Sender: MYLAN
  Company Number: US-MYLANLABS-2024M1049214

PATIENT
  Sex: Female

DRUGS (1)
  1. DIAZEPAM [Suspect]
     Active Substance: DIAZEPAM
     Indication: Anxiety
     Dosage: 5 MILLIGRAM, BID (MOUTH 2 TIME A DAY AS NEEDED)
     Route: 048

REACTIONS (3)
  - Brain fog [Unknown]
  - Head discomfort [Unknown]
  - Wrong technique in product usage process [Unknown]
